FAERS Safety Report 5763505-7 (Version None)
Quarter: 2008Q2

REPORT INFORMATION
  Report Type: 
  Country: None (occurrence: None)
  Receive Date: 20080609
  Receipt Date: 20080530
  Transmission Date: 20081010
  Serious: Yes (Hospitalization)
  Sender: FDA-Public Use
  Company Number: CL-ABBOTT-08P-034-0454681-00

PATIENT
  Sex: Male
  Weight: 54 kg

DRUGS (4)
  1. KALETRA [Suspect]
     Indication: HIV INFECTION
     Dates: start: 20071201
  2. KALETRA [Suspect]
     Indication: HIV INFECTION
     Dosage: 1000/270 MG, DAILY
     Route: 048
     Dates: start: 20070816, end: 20071201
  3. LAMIVUDINE [Concomitant]
     Indication: HIV INFECTION
     Route: 048
     Dates: start: 20070816
  4. EFAVIRENZ [Concomitant]
     Indication: HIV INFECTION
     Dosage: DAILY
     Route: 048
     Dates: start: 20070816

REACTIONS (6)
  - DIARRHOEA [None]
  - DYSPNOEA AT REST [None]
  - GENERAL PHYSICAL HEALTH DETERIORATION [None]
  - PNEUMONIA [None]
  - PRODUCTIVE COUGH [None]
  - PYREXIA [None]
